FAERS Safety Report 4412088-2 (Version None)
Quarter: 2004Q3

REPORT INFORMATION
  Report Type: 
  Country: None (occurrence: None)
  Receive Date: 20040730
  Receipt Date: 20040723
  Transmission Date: 20050211
  Serious: Yes (Hospitalization)
  Sender: FDA-Public Use
  Company Number: US-GLAXOSMITHKLINE-A0519547A

PATIENT

DRUGS (2)
  1. PAXIL [Suspect]
  2. DILANTIN [Concomitant]

REACTIONS (1)
  - LIVER DISORDER [None]
